FAERS Safety Report 13783200 (Version 2)
Quarter: 2017Q3

REPORT INFORMATION
  Report Type: Spontaneous
  Country: GB (occurrence: GB)
  Receive Date: 20170724
  Receipt Date: 20170807
  Transmission Date: 20171127
  Serious: Yes (Death, Hospitalization, Disabling, Other)
  Sender: FDA-Public Use
  Company Number: GB-TEVA-787354ACC

PATIENT
  Age: 63 Year
  Sex: Female

DRUGS (14)
  1. COLECALCIFEROL [Concomitant]
     Active Substance: CHOLECALCIFEROL
  2. ATORVASTATIN [Concomitant]
     Active Substance: ATORVASTATIN
  3. PARACETAMOL [Concomitant]
     Active Substance: ACETAMINOPHEN
  4. SALBUTAMOL [Concomitant]
     Active Substance: ALBUTEROL
  5. CLOPIDOGREL [Suspect]
     Active Substance: CLOPIDOGREL BISULFATE
     Indication: CEREBROVASCULAR ACCIDENT
     Route: 048
  6. OMEPRAZOLE. [Concomitant]
     Active Substance: OMEPRAZOLE
  7. BUMETANIDE. [Concomitant]
     Active Substance: BUMETANIDE
  8. BECLOMETASONE DIPROPIONATE [Concomitant]
     Active Substance: BECLOMETHASONE DIPROPIONATE
  9. THIAMINE. [Concomitant]
     Active Substance: THIAMINE
  10. BISOPROLOL [Concomitant]
     Active Substance: BISOPROLOL
  11. HYDRALAZINE [Concomitant]
     Active Substance: HYDRALAZINE HYDROCHLORIDE
  12. FOSTAIR [Concomitant]
     Active Substance: BECLOMETHASONE\FORMOTEROL
  13. MONOMIL XL [Concomitant]
     Active Substance: ISOSORBIDE MONONITRATE
  14. VITAMIN B COMPLEX STRONG [Concomitant]

REACTIONS (7)
  - Intestinal ischaemia [Fatal]
  - Haemorrhagic diathesis [Unknown]
  - Haematoma [Not Recovered/Not Resolved]
  - Acute kidney injury [Not Recovered/Not Resolved]
  - Compartment syndrome [Not Recovered/Not Resolved]
  - Acidosis [Not Recovered/Not Resolved]
  - Arterial haemorrhage [Not Recovered/Not Resolved]

NARRATIVE: CASE EVENT DATE: 20170620
